FAERS Safety Report 8552427-4 (Version None)
Quarter: 2012Q3

REPORT INFORMATION
  Report Type: 
  Country: None (occurrence: None)
  Receive Date: 20120718
  Receipt Date: 20120706
  Transmission Date: 20120928
  Serious: Yes (Life-Threatening, Hospitalization)
  Sender: FDA-Public Use
  Company Number: 2012P1048540

PATIENT
  Age: 18 Year
  Sex: Female

DRUGS (1)
  1. FLECAINIDE ACETATE [Suspect]
     Indication: SUICIDE ATTEMPT
     Dosage: 1800 MG, X1

REACTIONS (7)
  - ELECTROCARDIOGRAM QRS COMPLEX PROLONGED [None]
  - SOMNOLENCE [None]
  - ELECTROCARDIOGRAM QT PROLONGED [None]
  - BUNDLE BRANCH BLOCK RIGHT [None]
  - SUICIDE ATTEMPT [None]
  - INCORRECT DOSE ADMINISTERED [None]
  - HYPOTENSION [None]
